FAERS Safety Report 20797228 (Version 2)
Quarter: 2022Q2

REPORT INFORMATION
  Report Type: Spontaneous
  Country: US (occurrence: US)
  Receive Date: 20220506
  Receipt Date: 20220518
  Transmission Date: 20220720
  Serious: No
  Sender: FDA-Public Use
  Company Number: US-ORGANON-O2205USA000293

PATIENT
  Sex: Female
  Weight: 55.782 kg

DRUGS (2)
  1. NEXPLANON [Suspect]
     Active Substance: ETONOGESTREL
     Indication: Contraception
     Dosage: 1 IMPLANT,OF 68MG IN LEFT ARM, FOR EVERY 3 YEARS
     Route: 059
     Dates: start: 20210330, end: 20220426
  2. NEXPLANON [Concomitant]
     Active Substance: ETONOGESTREL
     Dosage: 1 IMPLANT
     Route: 059
     Dates: end: 20210330

REACTIONS (2)
  - Menstruation irregular [Unknown]
  - Device breakage [Recovered/Resolved]
